FAERS Safety Report 20725823 (Version 1)
Quarter: 2022Q2

REPORT INFORMATION
  Report Type: Spontaneous
  Country: US (occurrence: None)
  Receive Date: 20220419
  Receipt Date: 20220419
  Transmission Date: 20220721
  Serious: No
  Sender: FDA-Public Use
  Company Number: None

PATIENT
  Age: 23 Year
  Sex: Female
  Weight: 83.91 kg

DRUGS (1)
  1. BEBTELOVIMAB [Suspect]
     Active Substance: BEBTELOVIMAB
     Indication: COVID-19
     Dosage: FREQUENCY : ONCE;?
     Route: 042

REACTIONS (7)
  - Dyspepsia [None]
  - Dyspnoea [None]
  - Flushing [None]
  - Back pain [None]
  - Neck pain [None]
  - Headache [None]
  - Nausea [None]

NARRATIVE: CASE EVENT DATE: 20220415
